FAERS Safety Report 10144006 (Version 1)
Quarter: 2014Q2

REPORT INFORMATION
  Report Type: Spontaneous
  Country: AU (occurrence: AU)
  Receive Date: 20140430
  Receipt Date: 20140430
  Transmission Date: 20141212
  Serious: Yes (Disabling, Other)
  Sender: FDA-Public Use
  Company Number: AU-ASTRAZENECA-2014SE28340

PATIENT
  Age: 25490 Day
  Sex: Female

DRUGS (2)
  1. NEXIUM [Suspect]
     Route: 048
     Dates: start: 20140309, end: 20140314
  2. NEXIUM [Suspect]
     Route: 048

REACTIONS (6)
  - Dyspepsia [Recovered/Resolved]
  - Gastrooesophageal reflux disease [Unknown]
  - Pain [Recovered/Resolved]
  - Drug level changed [Recovered/Resolved]
  - Abdominal pain [Unknown]
  - Drug ineffective [Recovered/Resolved]
